FAERS Safety Report 15987644 (Version 2)
Quarter: 2019Q1

REPORT INFORMATION
  Report Type: Spontaneous
  Country: FR (occurrence: FR)
  Receive Date: 20190220
  Receipt Date: 20190326
  Transmission Date: 20190418
  Serious: Yes (Other)
  Sender: FDA-Public Use
  Company Number: FR-PFIZER INC-2019070350

PATIENT
  Age: 54 Year
  Sex: Male
  Weight: 91.5 kg

DRUGS (1)
  1. OXALIPLATIN. [Suspect]
     Active Substance: OXALIPLATIN
     Indication: RECTAL CANCER
     Dosage: UNK
     Route: 042
     Dates: start: 20190117, end: 2019

REACTIONS (3)
  - Drug specific antibody [Unknown]
  - Thrombocytopenia [Unknown]
  - Coombs positive haemolytic anaemia [Unknown]

NARRATIVE: CASE EVENT DATE: 201901
